FAERS Safety Report 17584496 (Version 1)
Quarter: 2020Q1

REPORT INFORMATION
  Report Type: Spontaneous
  Country: DE (occurrence: DE)
  Receive Date: 20200326
  Receipt Date: 20200326
  Transmission Date: 20200409
  Serious: Yes (Other)
  Sender: FDA-Public Use
  Company Number: DE-PFIZER INC-2020125442

PATIENT
  Age: 49 Year
  Sex: Female

DRUGS (1)
  1. ZELDOX [Suspect]
     Active Substance: ZIPRASIDONE
     Dosage: UNK
     Dates: start: 201909

REACTIONS (3)
  - Clonus [Unknown]
  - Extrapyramidal disorder [Unknown]
  - Suicidal ideation [Unknown]
